FAERS Safety Report 9045109 (Version 1)
Quarter: 2013Q1

REPORT INFORMATION
  Report Type: Spontaneous
  Country: IT (occurrence: IT)
  Receive Date: 20130130
  Receipt Date: 20130130
  Transmission Date: 20140127
  Serious: Yes (Hospitalization)
  Sender: FDA-Public Use
  Company Number: PHHY2013IT007891

PATIENT
  Age: 73 Year
  Sex: Male

DRUGS (12)
  1. CLOPIDOGREL [Suspect]
     Dosage: 75 MG, UNK
     Route: 048
     Dates: start: 20120101, end: 20121221
  2. ACETYLSALICYLIC ACID [Suspect]
     Dosage: 1 DF, UNK
     Route: 048
     Dates: start: 20120101, end: 20121221
  3. COUMADIN [Suspect]
     Dosage: 5 MG, UNK
     Dates: start: 20120101, end: 20121221
  4. NOVONORM [Concomitant]
  5. FLUIMUCIL [Concomitant]
  6. CARDIAZOL-PARACODINA [Concomitant]
  7. DIGOXIN [Concomitant]
  8. FUROSEMIDE [Concomitant]
  9. ESOMEPRAZOLE [Concomitant]
  10. BISOPROLOL [Concomitant]
  11. CITALOPRAM [Concomitant]
  12. ROSUVASTATIN [Concomitant]

REACTIONS (1)
  - Haemoptysis [Unknown]
